FAERS Safety Report 21920499 (Version 1)
Quarter: 2023Q1

REPORT INFORMATION
  Report Type: Spontaneous
  Country: IT (occurrence: IT)
  Receive Date: 20230127
  Receipt Date: 20230127
  Transmission Date: 20230417
  Serious: Yes (Death, Other)
  Sender: FDA-Public Use
  Company Number: IT-BAYER-2023P004120

PATIENT
  Age: 64 Year
  Sex: Male

DRUGS (2)
  1. STIVARGA [Suspect]
     Active Substance: REGORAFENIB
     Indication: Glioblastoma
     Dosage: UNK
  2. DEXAMETHASONE [Suspect]
     Active Substance: DEXAMETHASONE
     Indication: Brain oedema
     Dosage: 2-4 MG/DAILY

REACTIONS (10)
  - Cerebral nocardiosis [Fatal]
  - Pulmonary nocardiosis [Fatal]
  - Paraparesis [None]
  - Lung consolidation [None]
  - Off label use [None]
  - Asthenia [None]
  - Malaise [None]
  - Muscular weakness [None]
  - Neutrophilia [None]
  - C-reactive protein increased [None]
